FAERS Safety Report 18876334 (Version 1)
Quarter: 2021Q1

REPORT INFORMATION
  Report Type: Report from Study
  Country: US (occurrence: US)
  Receive Date: 20210211
  Receipt Date: 20210211
  Transmission Date: 20210420
  Serious: Yes (Death, Other)
  Sender: FDA-Public Use
  Company Number: US-SUN PHARMACEUTICAL INDUSTRIES LTD-2021R1-279596

PATIENT
  Age: 58 Year
  Sex: Male

DRUGS (2)
  1. OXYCODONE [Suspect]
     Active Substance: OXYCODONE
     Indication: PRODUCT USED FOR UNKNOWN INDICATION
     Route: 065
  2. MORPHINE [Suspect]
     Active Substance: MORPHINE
     Indication: PRODUCT USED FOR UNKNOWN INDICATION
     Route: 065

REACTIONS (10)
  - Hyperreflexia [Fatal]
  - Hypotension [Fatal]
  - Respiratory depression [Fatal]
  - Electrocardiogram QRS complex prolonged [Fatal]
  - Bradycardia [Fatal]
  - Depressed level of consciousness [Fatal]
  - Coagulopathy [Fatal]
  - Arrhythmia [Fatal]
  - Acute kidney injury [Fatal]
  - Electrocardiogram QT interval [Fatal]
